FAERS Safety Report 15826157 (Version 1)
Quarter: 2019Q1

REPORT INFORMATION
  Report Type: Spontaneous
  Country: HU (occurrence: HU)
  Receive Date: 20190115
  Receipt Date: 20190115
  Transmission Date: 20190417
  Serious: Yes (Hospitalization, Other)
  Sender: FDA-Public Use
  Company Number: PHHY2018HU195679

PATIENT
  Age: 67 Year
  Sex: Male

DRUGS (9)
  1. AZATHIOPRINE. [Suspect]
     Active Substance: AZATHIOPRINE
     Indication: CROHN^S DISEASE
     Dosage: 50 MG, QD
     Route: 065
     Dates: start: 201612, end: 201704
  2. MESALAZINE [Suspect]
     Active Substance: MESALAMINE
     Indication: CROHN^S DISEASE
     Dosage: 4 G, UNK
     Route: 065
  3. MESALAZINE [Suspect]
     Active Substance: MESALAMINE
     Dosage: 2 G, QD
     Route: 065
     Dates: start: 2014
  4. POTASSIUM [Concomitant]
     Active Substance: POTASSIUM
     Indication: PRODUCT USED FOR UNKNOWN INDICATION
     Route: 065
  5. AZATHIOPRINE. [Suspect]
     Active Substance: AZATHIOPRINE
     Dosage: 75 MG, QD
     Route: 065
     Dates: start: 201704
  6. BUDESONIDE. [Suspect]
     Active Substance: BUDESONIDE
     Indication: CROHN^S DISEASE
     Dosage: 9 MG, UNK
     Route: 065
     Dates: start: 2014, end: 201612
  7. PANTOPRAZOLE [Concomitant]
     Active Substance: PANTOPRAZOLE
     Indication: PRODUCT USED FOR UNKNOWN INDICATION
     Dosage: 40 MG, QD
     Route: 065
  8. MAGNESIUM [Concomitant]
     Active Substance: MAGNESIUM
     Indication: PRODUCT USED FOR UNKNOWN INDICATION
     Route: 065
  9. METOCLOPRAMIDE. [Concomitant]
     Active Substance: METOCLOPRAMIDE
     Indication: PRODUCT USED FOR UNKNOWN INDICATION
     Route: 065

REACTIONS (8)
  - Anaemia [Unknown]
  - Malnutrition [Unknown]
  - Hypoalbuminaemia [Unknown]
  - Weight decreased [Recovering/Resolving]
  - Constipation [Unknown]
  - Acute abdomen [Unknown]
  - Diarrhoea [Unknown]
  - Treatment failure [Unknown]

NARRATIVE: CASE EVENT DATE: 2017
